FAERS Safety Report 7939195-1 (Version None)
Quarter: 2011Q4

REPORT INFORMATION
  Report Type: 
  Country: None (occurrence: None)
  Receive Date: 20111124
  Receipt Date: 20111117
  Transmission Date: 20120403
  Serious: Yes (Other)
  Sender: FDA-Public Use
  Company Number: US-ROCHE-766018

PATIENT
  Sex: Male
  Weight: 66.7 kg

DRUGS (4)
  1. ACCUTANE [Suspect]
     Route: 065
  2. PREDNISONE TAB [Concomitant]
  3. MYCELEX [Concomitant]
  4. ACCUTANE [Suspect]
     Indication: ACNE
     Route: 065
     Dates: start: 19961031, end: 19970321

REACTIONS (6)
  - ANAEMIA [None]
  - COLITIS ULCERATIVE [None]
  - INFLAMMATORY BOWEL DISEASE [None]
  - CROHN'S DISEASE [None]
  - DEPRESSION [None]
  - SUICIDAL IDEATION [None]
